FAERS Safety Report 4315085-0 (Version None)
Quarter: 2004Q1

REPORT INFORMATION
  Report Type: 
  Country: None (occurrence: None)
  Receive Date: 20040310
  Receipt Date: 20031202
  Transmission Date: 20041129
  Serious: Yes (Hospitalization, Other)
  Sender: FDA-Public Use
  Company Number: PHEH2003US11063

PATIENT
  Age: 76 Year
  Sex: Female

DRUGS (12)
  1. EXELON [Suspect]
     Indication: DEMENTIA ALZHEIMER'S TYPE
     Dosage: 6 MG, BID
     Route: 048
     Dates: start: 20020908
  2. EXELON [Suspect]
     Dosage: 3 MG, BID
     Route: 048
     Dates: start: 20030729
  3. PRINIVIL [Concomitant]
  4. VERAPAMIL [Concomitant]
  5. TOPROL-XL [Concomitant]
  6. CLONIDINE [Concomitant]
  7. LEVOXYL [Concomitant]
  8. FLOVENT [Concomitant]
  9. ZOLOFT                                  /USA/ [Concomitant]
  10. LIPITOR [Concomitant]
  11. ECOTRIN [Concomitant]
  12. CALCIUM [Concomitant]

REACTIONS (6)
  - AUTONOMIC NERVOUS SYSTEM IMBALANCE [None]
  - BLOOD PRESSURE FLUCTUATION [None]
  - DIZZINESS [None]
  - GAIT DISTURBANCE [None]
  - ORTHOSTATIC HYPOTENSION [None]
  - SYNCOPE [None]
